FAERS Safety Report 4528193-6 (Version None)
Quarter: 2004Q4

REPORT INFORMATION
  Report Type: 
  Country: None (occurrence: None)
  Receive Date: 20041130
  Receipt Date: 20041011
  Transmission Date: 20050328
  Serious: No
  Sender: FDA-Public Use
  Company Number: 702328

PATIENT
  Sex: Male

DRUGS (4)
  1. AMEVIVE [Suspect]
     Indication: PSORIASIS
     Dosage: 15 MG QW IM
     Route: 030
     Dates: start: 20040706, end: 20040913
  2. HYPERTENSION MEDICATION (NOS) [Concomitant]
  3. OLUX [Concomitant]
  4. ALPRAZOLAM [Concomitant]

REACTIONS (1)
  - CD4 LYMPHOCYTES DECREASED [None]
